FAERS Safety Report 25936352 (Version 1)
Quarter: 2025Q4

REPORT INFORMATION
  Report Type: Spontaneous
  Country: MY (occurrence: MY)
  Receive Date: 20251017
  Receipt Date: 20251017
  Transmission Date: 20260118
  Serious: Yes (Death, Hospitalization)
  Sender: NOVARTIS
  Company Number: MY-002147023-NVSC2025MY159531

PATIENT
  Age: 23 Year
  Sex: Male

DRUGS (13)
  1. CYCLOSPORINE [Suspect]
     Active Substance: CYCLOSPORINE
     Indication: Prophylaxis against graft versus host disease
     Dosage: UNK
     Route: 065
  2. METHYLPREDNISOLONE [Concomitant]
     Active Substance: METHYLPREDNISOLONE
     Indication: Acute graft versus host disease
     Dosage: UNK
     Route: 065
  3. BUDESONIDE [Concomitant]
     Active Substance: BUDESONIDE
     Indication: Acute graft versus host disease
     Dosage: UNK
     Route: 065
  4. TACROLIMUS [Concomitant]
     Active Substance: TACROLIMUS
     Indication: Acute graft versus host disease
     Dosage: UNK
     Route: 065
  5. RUXOLITINIB [Concomitant]
     Active Substance: RUXOLITINIB
     Indication: Acute graft versus host disease
     Dosage: UNK
     Route: 065
  6. OCTREOTIDE [Concomitant]
     Active Substance: OCTREOTIDE
     Indication: Product used for unknown indication
     Dosage: UNK
     Route: 065
  7. CEFEPIME [Concomitant]
     Active Substance: CEFEPIME HYDROCHLORIDE
     Indication: Product used for unknown indication
     Dosage: UNK
     Route: 065
  8. METHOTREXATE [Concomitant]
     Active Substance: METHOTREXATE
     Indication: Product used for unknown indication
     Dosage: UNK
     Route: 065
  9. PREDNISOLONE [Concomitant]
     Active Substance: PREDNISOLONE
     Indication: Product used for unknown indication
     Dosage: UNK
     Route: 065
  10. OXYCODONE [Concomitant]
     Active Substance: OXYCODONE
     Indication: Product used for unknown indication
     Dosage: UNK
     Route: 065
  11. GANCICLOVIR [Concomitant]
     Active Substance: GANCICLOVIR
     Indication: Product used for unknown indication
     Dosage: UNK
     Route: 065
  12. FILGRASTIM [Concomitant]
     Active Substance: FILGRASTIM
     Indication: Product used for unknown indication
     Dosage: UNK
     Route: 065
  13. MEROPENEM [Concomitant]
     Active Substance: MEROPENEM
     Indication: Product used for unknown indication
     Dosage: UNK
     Route: 065

REACTIONS (31)
  - Diarrhoea [Fatal]
  - Stomatitis [Fatal]
  - Neutropenic colitis [Fatal]
  - Abdominal pain [Fatal]
  - Acute graft versus host disease [Fatal]
  - Disease progression [Fatal]
  - Mucosal hypertrophy [Fatal]
  - Device related infection [Fatal]
  - Drug ineffective [Fatal]
  - Haematuria [Fatal]
  - Dysuria [Fatal]
  - Cystitis haemorrhagic [Fatal]
  - Pneumonia klebsiella [Fatal]
  - Full blood count decreased [Fatal]
  - Pancytopenia [Fatal]
  - Haematochezia [Fatal]
  - Weight decreased [Fatal]
  - Cytomegalovirus infection reactivation [Fatal]
  - Hypokalaemia [Fatal]
  - Hypomagnesaemia [Fatal]
  - Arrhythmia [Fatal]
  - Physical deconditioning [Fatal]
  - Malnutrition [Fatal]
  - Epilepsy [Fatal]
  - Pyrexia [Fatal]
  - Vomiting [Fatal]
  - Hypotension [Fatal]
  - Gastrointestinal haemorrhage [Fatal]
  - Acute kidney injury [Fatal]
  - Death [Fatal]
  - Metabolic acidosis [Fatal]
